FAERS Safety Report 11745889 (Version 1)
Quarter: 2015Q4

REPORT INFORMATION
  Report Type: Spontaneous
  Country: US (occurrence: None)
  Receive Date: 20151116
  Receipt Date: 20151116
  Transmission Date: 20160304
  Serious: No
  Sender: FDA-Public Use
  Company Number: None

PATIENT
  Age: 20 Year
  Sex: Male
  Weight: 87 kg

DRUGS (8)
  1. CEFTAZIDIME. [Concomitant]
     Active Substance: CEFTAZIDIME
  2. FLUCONAZOLE. [Concomitant]
     Active Substance: FLUCONAZOLE
  3. URSODIOL. [Concomitant]
     Active Substance: URSODIOL
  4. PROCHLORPERAZINE. [Suspect]
     Active Substance: PROCHLORPERAZINE
     Indication: NAUSEA
     Dosage: INTRAVENOUS PUSH, ONE TIME DOSE X 2
     Dates: start: 20150619
  5. TACROLIMUS. [Concomitant]
     Active Substance: TACROLIMUS
  6. ACYCLOVIR. [Concomitant]
     Active Substance: ACYCLOVIR
  7. MYCOPHENOLATE MOFETIL. [Concomitant]
     Active Substance: MYCOPHENOLATE MOFETIL
  8. CALCIUM GLUCONATE. [Concomitant]
     Active Substance: CALCIUM GLUCONATE

REACTIONS (1)
  - Musculoskeletal stiffness [None]

NARRATIVE: CASE EVENT DATE: 20150619
